FAERS Safety Report 8339483-3 (Version None)
Quarter: 2012Q2

REPORT INFORMATION
  Report Type: 
  Country: None (occurrence: None)
  Receive Date: 20120507
  Receipt Date: 20120426
  Transmission Date: 20120825
  Serious: Yes (Hospitalization)
  Sender: FDA-Public Use
  Company Number: PHHY2012ES036080

PATIENT
  Age: 52 Year
  Sex: Male

DRUGS (2)
  1. DIOVAN HCT [Suspect]
     Indication: HYPERTENSION
     Dosage: UNK
     Route: 048
     Dates: start: 20101101
  2. DIOVAN HCT [Suspect]
     Dosage: DOSE WAS REDUCED
     Dates: start: 20110209

REACTIONS (5)
  - OLIGURIA [None]
  - BLOOD CREATININE INCREASED [None]
  - DIARRHOEA [None]
  - WEIGHT DECREASED [None]
  - RENAL FAILURE ACUTE [None]
